FAERS Safety Report 5412429-3 (Version None)
Quarter: 2007Q3

REPORT INFORMATION
  Report Type: 
  Country: None (occurrence: None)
  Receive Date: 20070813
  Receipt Date: 20070808
  Transmission Date: 20080115
  Serious: Yes (Life-Threatening)
  Sender: FDA-Public Use
  Company Number: JP-ASTRAZENECA-2005AP04925

PATIENT
  Age: 42 Year
  Sex: Female

DRUGS (4)
  1. NOLVADEX [Suspect]
     Indication: BREAST CANCER
     Route: 048
     Dates: start: 20010101, end: 20061201
  2. CYCLOPHOSPHAMIDE [Concomitant]
     Indication: BREAST CANCER
     Dosage: FOUR COURSES
  3. METHOTREXATE [Concomitant]
     Indication: BREAST CANCER
     Dosage: FOUR COURSES
  4. FLUOROURACIL [Concomitant]
     Indication: BREAST CANCER
     Dosage: FOUR COURSES

REACTIONS (1)
  - LUNG NEOPLASM MALIGNANT [None]
